FAERS Safety Report 8480068-6 (Version None)
Quarter: 2012Q2

REPORT INFORMATION
  Report Type: 
  Country: None (occurrence: None)
  Receive Date: 20120629
  Receipt Date: 20120625
  Transmission Date: 20120825
  Serious: No
  Sender: FDA-Public Use
  Company Number: US-PFIZER INC-2012153646

PATIENT
  Sex: Female
  Weight: 81.633 kg

DRUGS (7)
  1. PRADAXA [Concomitant]
     Indication: ATRIAL FIBRILLATION
     Dosage: 150 MG, 2X/DAY
  2. AZITHROMYCIN [Suspect]
     Dosage: 250MG TWO TABLETS DAILY
  3. VERAPAMIL HYDROCHLORIDE [Concomitant]
     Indication: ATRIAL FIBRILLATION
     Dosage: UNK ( BY CUTTING 240MG TABLET INTO HALF), DAILY
  4. ATORVASTATIN CALCIUM [Suspect]
     Indication: BLOOD CHOLESTEROL INCREASED
     Dosage: 20 MG, DAILY
     Dates: start: 20120303, end: 20120618
  5. DIGOXIN [Concomitant]
     Indication: ATRIAL FIBRILLATION
     Dosage: 250 UG, DAILY
  6. AZITHROMYCIN [Suspect]
     Dosage: 250MG ONE TABLET DAILY
  7. AZITHROMYCIN [Suspect]
     Dosage: UNK, DAILY

REACTIONS (8)
  - DRUG INEFFECTIVE [None]
  - RASH [None]
  - FEELING ABNORMAL [None]
  - DIZZINESS [None]
  - VOMITING IN PREGNANCY [None]
  - ANXIETY [None]
  - HEADACHE [None]
  - ABDOMINAL PAIN UPPER [None]
